FAERS Safety Report 10146860 (Version 1)
Quarter: 2014Q2

REPORT INFORMATION
  Report Type: Spontaneous
  Country: US (occurrence: None)
  Receive Date: 20140430
  Receipt Date: 20140430
  Transmission Date: 20141212
  Serious: Yes (Life-Threatening, Hospitalization)
  Sender: FDA-Public Use
  Company Number: None

PATIENT
  Age: 47 Year
  Sex: Male

DRUGS (3)
  1. VALACYCLOVIR [Suspect]
     Indication: PROPHYLAXIS
     Route: 048
     Dates: start: 20130711, end: 20130711
  2. FLUVOXAMINE [Concomitant]
  3. ROSUVASTATIN [Concomitant]

REACTIONS (1)
  - Anaphylactoid reaction [None]
